FAERS Safety Report 7764392-8 (Version None)
Quarter: 2011Q3

REPORT INFORMATION
  Report Type: 
  Country: None (occurrence: None)
  Receive Date: 20110919
  Receipt Date: 20110909
  Transmission Date: 20111222
  Serious: Yes (Disabling, Other)
  Sender: FDA-Public Use
  Company Number: 2008AL001617

PATIENT
  Age: 31 Year
  Sex: Female

DRUGS (7)
  1. CALCIUM CARBONATE [Suspect]
     Indication: OSTEOPOROSIS
     Dosage: 1 DF;QID
     Dates: start: 19980101
  2. NIFEDIPINE [Suspect]
     Indication: INSOMNIA
     Dosage: 5 MG;BID
     Dates: start: 20040101
  3. AMITRIPTYLINE HCL [Suspect]
     Indication: INSOMNIA
     Dosage: 150 MG;QD
     Dates: start: 20060701
  4. MULTI-VITAMIN [Concomitant]
  5. MICROGYNON (EUGYNON) [Suspect]
     Indication: CONTRACEPTION
     Dosage: 30 MG;QD
     Dates: start: 20040101
  6. PROVIGIL [Suspect]
     Indication: MULTIPLE SCLEROSIS
     Dosage: 200  MG;QD
     Dates: start: 20060201, end: 20060301
  7. PROVIGIL [Suspect]
     Indication: FATIGUE
     Dosage: 200  MG;QD
     Dates: start: 20060201, end: 20060301

REACTIONS (9)
  - ARTHRALGIA [None]
  - LUPUS-LIKE SYNDROME [None]
  - ERYTHEMA [None]
  - HISTONE ANTIBODY POSITIVE [None]
  - IMPAIRED WORK ABILITY [None]
  - SKIN LESION [None]
  - JOINT STIFFNESS [None]
  - JOINT SWELLING [None]
  - RASH [None]
